FAERS Safety Report 9095642 (Version 3)
Quarter: 2013Q2

REPORT INFORMATION
  Report Type: Report from Study
  Country: CA (occurrence: CA)
  Receive Date: 20130220
  Receipt Date: 20130530
  Transmission Date: 20140414
  Serious: Yes (Death, Hospitalization)
  Sender: FDA-Public Use
  Company Number: PHHY2013CA013010

PATIENT
  Age: 49 Year
  Sex: Female

DRUGS (1)
  1. SANDOSTATIN [Suspect]
     Indication: OVARIAN NEOPLASM
     Dosage: TID
     Route: 058
     Dates: start: 20130114

REACTIONS (3)
  - Death [Fatal]
  - Dyspepsia [Unknown]
  - Dehydration [Unknown]
